FAERS Safety Report 6572145-1 (Version None)
Quarter: 2010Q1

REPORT INFORMATION
  Report Type: 
  Country: None (occurrence: None)
  Receive Date: 20100205
  Receipt Date: 20100202
  Transmission Date: 20100710
  Serious: Yes (Death)
  Sender: FDA-Public Use
  Company Number: A0816512A

PATIENT
  Age: 40 Year
  Sex: Male

DRUGS (1)
  1. VENTOLIN [Suspect]
     Indication: ASTHMA
     Dosage: 90MCG FOUR TIMES PER DAY
     Route: 055

REACTIONS (1)
  - LUNG CANCER METASTATIC [None]
